FAERS Safety Report 7971752-9 (Version None)
Quarter: 2011Q4

REPORT INFORMATION
  Report Type: 
  Country: None (occurrence: None)
  Receive Date: 20111212
  Receipt Date: 20111201
  Transmission Date: 20120403
  Serious: Yes (Other)
  Sender: FDA-Public Use
  Company Number: CHPA2011US017248

PATIENT
  Age: 77 Year
  Sex: Female

DRUGS (2)
  1. ASPIRIN [Concomitant]
     Indication: CARDIOVASCULAR EVENT PROPHYLAXIS
     Dosage: 81 MG, QD
     Route: 048
  2. EXCEDRIN (MIGRAINE) [Suspect]
     Indication: ARTHRALGIA
     Dosage: 3-4 DF, QD
     Route: 048

REACTIONS (3)
  - UNDERDOSE [None]
  - HYPERTENSION [None]
  - EPISTAXIS [None]
